FAERS Safety Report 16962140 (Version 1)
Quarter: 2019Q4

REPORT INFORMATION
  Report Type: Report from Study
  Country: US (occurrence: US)
  Receive Date: 20191025
  Receipt Date: 20191025
  Transmission Date: 20200122
  Serious: Yes (Other)
  Sender: FDA-Public Use
  Company Number: US-JNJFOC-20190933102

PATIENT
  Sex: Female

DRUGS (1)
  1. SPRAVATO [Suspect]
     Active Substance: ESKETAMINE
     Indication: DEPRESSION

REACTIONS (6)
  - Taste disorder [Unknown]
  - Depression [Unknown]
  - Hyperacusis [Unknown]
  - Loss of consciousness [Unknown]
  - Disorientation [Unknown]
  - Dissociation [Unknown]
